FAERS Safety Report 5811001-0 (Version None)
Quarter: 2008Q3

REPORT INFORMATION
  Report Type: 
  Country: None (occurrence: None)
  Receive Date: 20080716
  Receipt Date: 20080714
  Transmission Date: 20090109
  Serious: Yes (Other)
  Sender: FDA-Public Use
  Company Number: US-SP-2008-00990

PATIENT
  Age: 80 Year
  Sex: Female

DRUGS (7)
  1. THERACYS [Suspect]
     Indication: BLADDER CANCER
     Dosage: NOT REPORTED
     Route: 043
     Dates: start: 20071109, end: 20080102
  2. COUMADIN [Concomitant]
  3. FOSAMAX [Concomitant]
  4. HYDROCHLOROTHIAZIDE [Concomitant]
  5. LISINOPRIL [Concomitant]
  6. VYTORIN [Concomitant]
  7. TOPROL-XL [Concomitant]

REACTIONS (2)
  - FIBROMYALGIA [None]
  - MYALGIA [None]
